FAERS Safety Report 6100509-9 (Version None)
Quarter: 2009Q1

REPORT INFORMATION
  Report Type: 
  Country: None (occurrence: None)
  Receive Date: 20090227
  Receipt Date: 20090227
  Transmission Date: 20090719
  Serious: Yes (Hospitalization)
  Sender: FDA-Public Use
  Company Number: None

PATIENT
  Sex: Male
  Weight: 100 kg

DRUGS (7)
  1. QUETIAPINE FUMARATE [Suspect]
     Indication: POST-TRAUMATIC STRESS DISORDER
     Dosage: 25MG PO QHS
     Route: 048
     Dates: start: 20070117
  2. ASPIRIN [Concomitant]
  3. HYDROCHLOROTHIAZIDE [Concomitant]
  4. LISINOPRIL [Concomitant]
  5. VENLAFAXINE HCL [Concomitant]
  6. NAPROXEN [Concomitant]
  7. CLONAZEPAM [Concomitant]

REACTIONS (1)
  - SUICIDAL IDEATION [None]
